FAERS Safety Report 8880485 (Version 1)
Quarter: 2012Q4

REPORT INFORMATION
  Report Type: 
  Country: SE (occurrence: SE)
  Receive Date: 20121031
  Receipt Date: 20121031
  Transmission Date: 20130627
  Serious: Yes (Other)
  Sender: FDA-Public Use
  Company Number: SE-ASTRAZENECA-2012SE80478

PATIENT
  Age: 59 Year
  Sex: Male
  Weight: 87 kg

DRUGS (7)
  1. SELOKEN ZOC [Suspect]
     Route: 048
     Dates: start: 1990, end: 1993
  2. SELOKEN ZOC [Suspect]
     Route: 048
     Dates: start: 1993
  3. SELOKEN ZOC [Suspect]
     Route: 048
     Dates: end: 2007
  4. SELOKEN ZOC [Suspect]
     Route: 048
     Dates: start: 2007
  5. SELOKEN ZOC [Suspect]
     Dosage: 200 MG HALF TABLET IN MORNING, HALF IN THE EVENING
     Route: 048
     Dates: start: 2012
  6. SELOKEN ZOC [Suspect]
     Route: 048
  7. SELOKEN ZOC [Suspect]
     Route: 048

REACTIONS (8)
  - Myocardial infarction [Unknown]
  - Renal impairment [Unknown]
  - Fatigue [Unknown]
  - Dizziness [Unknown]
  - Nightmare [Unknown]
  - Cardiac failure [Unknown]
  - Intentional drug misuse [Unknown]
  - Off label use [Unknown]
